FAERS Safety Report 7526631-8 (Version None)
Quarter: 2011Q2

REPORT INFORMATION
  Report Type: 
  Country: None (occurrence: None)
  Receive Date: 20110606
  Receipt Date: 20110526
  Transmission Date: 20111010
  Serious: Yes (Death, Life-Threatening, Hospitalization)
  Sender: FDA-Public Use
  Company Number: AT-PURDUE-DEU-2011-0007266

PATIENT
  Age: 32 Year
  Sex: Male

DRUGS (3)
  1. MORPHINE [Suspect]
     Indication: DRUG ABUSE
     Dosage: UNK
     Route: 042
  2. TRAZODONE HCL [Suspect]
     Indication: DRUG ABUSE
  3. FLUNITRAZEPAM [Suspect]
     Indication: DRUG ABUSE

REACTIONS (7)
  - DRUG DIVERSION [None]
  - DRUG ABUSE [None]
  - CEREBRAL PALSY [None]
  - LOSS OF CONSCIOUSNESS [None]
  - MULTIPLE DRUG OVERDOSE [None]
  - DRUG LEVEL [None]
  - BRAIN OEDEMA [None]
